FAERS Safety Report 8023352 (Version 2)
Quarter: 2014Q4

REPORT INFORMATION
  Report Type: Spontaneous
  Country: US (occurrence: US)
  Receive Date: 20110706
  Receipt Date: 20141023
  Transmission Date: 20150529
  Serious: Yes (Death, Hospitalization, Other)
  Sender: FDA-Public Use
  Company Number: US-GLAXOSMITHKLINE-A0865097A

PATIENT
  Age: 55 Year
  Sex: Female

DRUGS (10)
  1. LUMIGAN [Concomitant]
     Active Substance: BIMATOPROST
  2. ZESTRIL [Concomitant]
     Active Substance: LISINOPRIL
  3. LIPITOR [Concomitant]
     Active Substance: ATORVASTATIN CALCIUM
  4. AVANDAMET [Suspect]
     Active Substance: METFORMIN HYDROCHLORIDE\ROSIGLITAZONE MALEATE
     Indication: TYPE 2 DIABETES MELLITUS
     Dates: start: 200212, end: 200601
  5. TENORMIN [Concomitant]
     Active Substance: ATENOLOL
  6. NOVOLIN R [Concomitant]
     Active Substance: INSULIN HUMAN
  7. HUMULIN N [Concomitant]
     Active Substance: INSULIN HUMAN
  8. AVANDIA [Suspect]
     Active Substance: ROSIGLITAZONE MALEATE
     Indication: TYPE 2 DIABETES MELLITUS
     Route: 048
     Dates: start: 200111, end: 200706
  9. VALIUM [Concomitant]
     Active Substance: DIAZEPAM
  10. VICODIN [Concomitant]
     Active Substance: ACETAMINOPHEN\HYDROCODONE BITARTRATE

REACTIONS (7)
  - Hypertensive encephalopathy [Unknown]
  - Cerebrovascular accident [Unknown]
  - Death [Fatal]
  - VIIth nerve paralysis [Unknown]
  - Macular oedema [Unknown]
  - Cardiac failure congestive [Unknown]
  - Transient ischaemic attack [Unknown]

NARRATIVE: CASE EVENT DATE: 20060417
